FAERS Safety Report 9424593 (Version 1)
Quarter: 2013Q3

REPORT INFORMATION
  Report Type: Spontaneous
  Country: CA (occurrence: None)
  Receive Date: 20130726
  Receipt Date: 20130726
  Transmission Date: 20140515
  Serious: No
  Sender: FDA-Public Use
  Company Number: None

PATIENT
  Age: 73 None
  Sex: 0
  Weight: 58.97 kg

DRUGS (1)
  1. MOXIFLOXACIN [Suspect]
     Indication: CHRONIC OBSTRUCTIVE PULMONARY DISEASE
     Dates: start: 20130508, end: 20130513

REACTIONS (10)
  - Eyelid oedema [None]
  - Erythema of eyelid [None]
  - Tongue discolouration [None]
  - Skin exfoliation [None]
  - Vaginal inflammation [None]
  - Skin discolouration [None]
  - Joint swelling [None]
  - Abasia [None]
  - Decreased appetite [None]
  - Poor quality sleep [None]
